FAERS Safety Report 19809305 (Version 1)
Quarter: 2021Q3

REPORT INFORMATION
  Report Type: Spontaneous
  Country: US (occurrence: US)
  Receive Date: 20210909
  Receipt Date: 20210909
  Transmission Date: 20211014
  Serious: Yes (Hospitalization)
  Sender: FDA-Public Use
  Company Number: None

PATIENT
  Age: 62 Year
  Sex: Male

DRUGS (11)
  1. ACYCLOVIR 400MG TABLETS [Concomitant]
  2. METOPROLOL SUCCINATE ER 100MG TABLETS [Concomitant]
  3. PREDNISONE 10MG TABLETS [Concomitant]
     Active Substance: PREDNISONE
  4. URSIDIOL 300MG CAPSULES [Concomitant]
  5. OXYCONTIN 10MG TABLETS [Concomitant]
  6. TACROLIMUS 0.5MG [Concomitant]
     Active Substance: TACROLIMUS
  7. MAGNESIUM OXIDE 400MG TABLETS [Concomitant]
  8. CLOPIDOGREL 75MG TABLETS [Concomitant]
  9. TASIGNA [Suspect]
     Active Substance: NILOTINIB
     Indication: ACUTE LYMPHOCYTIC LEUKAEMIA
     Route: 048
     Dates: start: 20190513
  10. ASPIRIN 81MG TABLETS [Concomitant]
  11. IBUPROFEN 400MG TABLETS [Concomitant]

REACTIONS (1)
  - Hospitalisation [None]

NARRATIVE: CASE EVENT DATE: 20210907
